FAERS Safety Report 9919084 (Version 1)
Quarter: 2014Q1

REPORT INFORMATION
  Report Type: Spontaneous
  Country: US (occurrence: US)
  Receive Date: 20140224
  Receipt Date: 20140224
  Transmission Date: 20141002
  Serious: Yes (Other)
  Sender: FDA-Public Use
  Company Number: US-PFIZER INC-2014052457

PATIENT
  Age: 58 Year
  Sex: Female
  Weight: 81.18 kg

DRUGS (3)
  1. GABAPENTIN [Suspect]
     Indication: NEUROPATHY PERIPHERAL
     Dosage: 300 MG, 2X/DAY
     Dates: start: 201108
  2. GABAPENTIN [Suspect]
     Indication: PAIN
     Dosage: 300 MG, 2X/DAY
     Dates: start: 201402
  3. FENTANYL [Concomitant]
     Dosage: 25 MG, UNK

REACTIONS (2)
  - Off label use [Unknown]
  - Weight increased [Unknown]
